FAERS Safety Report 17555790 (Version 1)
Quarter: 2020Q1

REPORT INFORMATION
  Report Type: Spontaneous
  Country: US (occurrence: US)
  Receive Date: 20200318
  Receipt Date: 20200318
  Transmission Date: 20200409
  Serious: No
  Sender: FDA-Public Use
  Company Number: None

PATIENT
  Age: 23 Year
  Sex: Female
  Weight: 64 kg

DRUGS (6)
  1. EMGALITY [Suspect]
     Active Substance: GALCANEZUMAB-GNLM
     Indication: MIGRAINE
     Dosage: ?          OTHER FREQUENCY:EVERY MONTH;?
     Route: 058
     Dates: start: 20190601
  2. PROPRANOLOL [Concomitant]
     Active Substance: PROPRANOLOL HYDROCHLORIDE
  3. CYPROHEPTADINE. [Concomitant]
     Active Substance: CYPROHEPTADINE
  4. ESCITALOPRAM [Concomitant]
     Active Substance: ESCITALOPRAM OXALATE
  5. CHOLECALCIFEROL [Concomitant]
     Active Substance: CHOLECALCIFEROL
  6. MIRENA [Concomitant]
     Active Substance: LEVONORGESTREL

REACTIONS (4)
  - Injection site mass [None]
  - Injection site hypersensitivity [None]
  - Injection site pain [None]
  - Injection site pruritus [None]

NARRATIVE: CASE EVENT DATE: 20200225
